FAERS Safety Report 6781919-3 (Version None)
Quarter: 2010Q2

REPORT INFORMATION
  Report Type: 
  Country: None (occurrence: None)
  Receive Date: 20100621
  Receipt Date: 20100612
  Transmission Date: 20101027
  Serious: Yes (Other)
  Sender: FDA-Public Use
  Company Number: CH-AMGEN-QUU417954

PATIENT
  Sex: Female

DRUGS (1)
  1. VECTIBIX [Suspect]
     Indication: COLORECTAL CANCER

REACTIONS (1)
  - INTESTINAL PERFORATION [None]
